FAERS Safety Report 7041564-1 (Version None)
Quarter: 2010Q4

REPORT INFORMATION
  Report Type: 
  Country: None (occurrence: None)
  Receive Date: 20101013
  Receipt Date: 20100421
  Transmission Date: 20110411
  Serious: No
  Sender: FDA-Public Use
  Company Number: US-ASTRAZENECA-2010SE17788

PATIENT
  Age: 18541 Day
  Sex: Male
  Weight: 77.1 kg

DRUGS (1)
  1. SYMBICORT [Suspect]
     Indication: EMPHYSEMA
     Dosage: TWICE ADAY
     Route: 055
     Dates: start: 20100318, end: 20100401

REACTIONS (2)
  - DRUG DOSE OMISSION [None]
  - DYSPNOEA [None]
